FAERS Safety Report 6892487-X (Version None)
Quarter: 2010Q3

REPORT INFORMATION
  Report Type: 
  Country: None (occurrence: None)
  Receive Date: 20100731
  Receipt Date: 20080618
  Transmission Date: 20110219
  Serious: No
  Sender: FDA-Public Use
  Company Number: US-PFIZER INC-2008048493

PATIENT
  Sex: Female

DRUGS (6)
  1. NORVASC [Suspect]
  2. COREG [Suspect]
  3. COZAAR [Suspect]
  4. ALISKIREN [Suspect]
  5. HYDRALAZINE HCL [Suspect]
  6. ZOCOR [Suspect]

REACTIONS (4)
  - DRUG INEFFECTIVE [None]
  - DRY MOUTH [None]
  - OEDEMA PERIPHERAL [None]
  - PAIN IN EXTREMITY [None]
